FAERS Safety Report 13351936 (Version 1)
Quarter: 2017Q1

REPORT INFORMATION
  Report Type: Spontaneous
  Country: US (occurrence: US)
  Receive Date: 20170320
  Receipt Date: 20170320
  Transmission Date: 20170429
  Serious: No
  Sender: FDA-Public Use
  Company Number: US-SA-2016SA193482

PATIENT
  Age: 51 Year
  Sex: Female

DRUGS (3)
  1. NASACORT ALLERGY 24HR [Suspect]
     Active Substance: TRIAMCINOLONE ACETONIDE
     Indication: MULTIPLE ALLERGIES
     Dosage: DOSE: 1 SPRAY, QD EACH NOSTRIL.
     Route: 045
     Dates: start: 20161016, end: 20161028
  2. NASACORT ALLERGY 24HR [Suspect]
     Active Substance: TRIAMCINOLONE ACETONIDE
     Indication: SINUS CONGESTION
     Dosage: DOSE: 1 SPRAY, QD EACH NOSTRIL.
     Route: 045
     Dates: start: 20161016, end: 20161028
  3. ADVAIR HFA [Concomitant]
     Active Substance: FLUTICASONE PROPIONATE\SALMETEROL XINAFOATE
     Indication: ASTHMA
     Dosage: 115/21 DAILY DOSE
     Route: 065
     Dates: start: 2014

REACTIONS (3)
  - Headache [Recovered/Resolved]
  - Eye disorder [Recovered/Resolved]
  - Drug dose omission [Unknown]

NARRATIVE: CASE EVENT DATE: 20161016
